FAERS Safety Report 7135180-0 (Version None)
Quarter: 2010Q4

REPORT INFORMATION
  Report Type: 
  Country: None (occurrence: None)
  Receive Date: 20101203
  Receipt Date: 20101129
  Transmission Date: 20110411
  Serious: Yes (Hospitalization, Other)
  Sender: FDA-Public Use
  Company Number: US-PFIZER INC-2010160558

PATIENT
  Sex: Male

DRUGS (1)
  1. CHANTIX [Suspect]
     Dosage: UNK
     Dates: start: 20070601

REACTIONS (5)
  - AMNESIA [None]
  - CONVULSION [None]
  - DELUSION [None]
  - LOSS OF CONSCIOUSNESS [None]
  - PARANOIA [None]
